FAERS Safety Report 5772006-1 (Version None)
Quarter: 2008Q2

REPORT INFORMATION
  Report Type: 
  Country: None (occurrence: None)
  Receive Date: 20080613
  Receipt Date: 20080602
  Transmission Date: 20081010
  Serious: Yes (Life-Threatening, Hospitalization, Other)
  Sender: FDA-Public Use
  Company Number: US-ABBOTT-07P-163-0426333-00

PATIENT
  Sex: Female
  Weight: 86.26 kg

DRUGS (12)
  1. HUMIRA [Suspect]
     Indication: PSORIATIC ARTHROPATHY
     Route: 050
  2. METHOTREXATE [Concomitant]
     Indication: PSORIATIC ARTHROPATHY
     Dosage: 4 TABLETS WEEKLY
     Route: 048
     Dates: start: 20071201
  3. METHOTREXATE [Concomitant]
     Indication: PSORIASIS
  4. GLYBURIDE [Concomitant]
     Indication: DIABETES MELLITUS
     Route: 048
     Dates: start: 20030101
  5. CLOPIDOGREL [Concomitant]
     Indication: DRUG USE FOR UNKNOWN INDICATION
     Route: 048
     Dates: start: 20030101
  6. ROSUVASTATIN [Concomitant]
     Indication: BLOOD CHOLESTEROL
     Route: 048
     Dates: start: 20060101
  7. LISINOPRIL [Concomitant]
     Indication: CARDIAC DISORDER
     Route: 048
     Dates: start: 20070101
  8. LISINOPRIL [Concomitant]
     Indication: BLOOD PRESSURE
  9. EZETIMIBE [Concomitant]
     Indication: BLOOD CHOLESTEROL
     Route: 048
     Dates: start: 20060101
  10. HYDROXYZINE [Concomitant]
     Indication: URTICARIA
     Dosage: EVERY THREE OR FOUR DAYS
     Route: 048
     Dates: start: 20050101
  11. ISOSORBIDE MONONITRATE [Concomitant]
     Indication: DRUG USE FOR UNKNOWN INDICATION
     Route: 048
  12. ISOSORBIDE DINITRATE [Concomitant]
     Indication: ARTERIAL DISORDER
     Route: 048

REACTIONS (11)
  - ABDOMINAL PAIN UPPER [None]
  - ANGINA PECTORIS [None]
  - ARTERIAL INJURY [None]
  - CEREBROVASCULAR ACCIDENT [None]
  - CHEST PAIN [None]
  - GAIT DISTURBANCE [None]
  - HAEMATEMESIS [None]
  - HAEMORRHAGE [None]
  - ILL-DEFINED DISORDER [None]
  - INTRA-ABDOMINAL HAEMORRHAGE [None]
  - SPEECH DISORDER [None]
